FAERS Safety Report 8653000 (Version 3)
Quarter: 2012Q4

REPORT INFORMATION
  Report Type: 
  Country: US (occurrence: US)
  Receive Date: 20120706
  Receipt Date: 20120924
  Transmission Date: 20130627
  Serious: No
  Sender: FDA-Public Use
  Company Number: US-PFIZER INC-2012158686

PATIENT
  Age: 72 Year
  Sex: Female
  Weight: 68.48 kg

DRUGS (5)
  1. GLUCOTROL XL [Suspect]
     Indication: TYPE 2 DIABETES MELLITUS
     Dosage: 10 mg, 2x/day
     Route: 048
  2. COREG [Concomitant]
     Indication: HYPERTENSION
     Dosage: UNK
  3. LASIX [Concomitant]
     Dosage: 20 mg, UNK
  4. DIOVANE [Concomitant]
     Dosage: UNK
  5. HYPHED [Concomitant]
     Indication: HYPERSENSITIVITY
     Dosage: UNK

REACTIONS (6)
  - Counterfeit drug administered [Unknown]
  - Nausea [Unknown]
  - Flatulence [Unknown]
  - Malaise [Unknown]
  - Headache [Unknown]
  - Feeling abnormal [Unknown]
